FAERS Safety Report 16991043 (Version 1)
Quarter: 2019Q4

REPORT INFORMATION
  Report Type: Spontaneous
  Country: US (occurrence: US)
  Receive Date: 20190920
  Receipt Date: 20190920
  Transmission Date: 20200122
  Serious: Yes (Hospitalization)
  Sender: FDA-Public Use
  Company Number: None

PATIENT
  Age: 53 Year
  Sex: Female

DRUGS (11)
  1. SCOPOLOMINE [Concomitant]
  2. GABAPENTIN. [Concomitant]
     Active Substance: GABAPENTIN
  3. TALTZ [Suspect]
     Active Substance: IXEKIZUMAB
     Indication: ANKYLOSING SPONDYLITIS
     Route: 048
     Dates: start: 20190825, end: 20190920
  4. CICLOFENAC [Concomitant]
  5. ALLOPURINOL. [Concomitant]
     Active Substance: ALLOPURINOL
  6. LEFLUNAMIDE [Concomitant]
     Active Substance: LEFLUNOMIDE
  7. CHLORDIASTEPAM [Concomitant]
  8. METHADONE [Concomitant]
     Active Substance: METHADONE HYDROCHLORIDE
  9. ATORVASTATIN [Concomitant]
     Active Substance: ATORVASTATIN
  10. VITAMIN B6 [Concomitant]
     Active Substance: PYRIDOXINE HYDROCHLORIDE
  11. BELOUCA [Concomitant]

REACTIONS (1)
  - Disease progression [None]

NARRATIVE: CASE EVENT DATE: 20190822
